FAERS Safety Report 15838162 (Version 1)
Quarter: 2019Q1

REPORT INFORMATION
  Report Type: Spontaneous
  Country: BE (occurrence: BE)
  Receive Date: 20190117
  Receipt Date: 20190117
  Transmission Date: 20190417
  Serious: Yes (Other)
  Sender: FDA-Public Use
  Company Number: BE-PFIZER INC-2019018570

PATIENT
  Age: 61 Year
  Sex: Female
  Weight: 98 kg

DRUGS (6)
  1. ISOTEN [Concomitant]
     Dosage: 2.5 MG, 1X/DAY
     Route: 048
  2. BRILIQUE [Concomitant]
     Active Substance: TICAGRELOR
     Dosage: 180 MG, 1X/DAY
     Route: 048
  3. ASAFLOW [Concomitant]
     Active Substance: ASPIRIN
     Dosage: 80 MG, 1X/DAY
     Route: 048
  4. ATORVASTATIN [Concomitant]
     Active Substance: ATORVASTATIN
     Dosage: 40 MG, 1X/DAY
     Route: 048
  5. BOSULIF [Suspect]
     Active Substance: BOSUTINIB MONOHYDRATE
     Indication: LEUKAEMIA
     Dosage: 500 MG, 1X/DAY, WILL BE RESUMED AT 100 MG 1X / DAY WITH GRADUAL INCREASE OF 100 MG EVERY 15 DAYS
     Route: 048
     Dates: start: 20181027, end: 20181115
  6. CORUNO [Concomitant]
     Active Substance: MOLSIDOMINE
     Dosage: 16 MG, 1X/DAY
     Route: 048

REACTIONS (6)
  - Paraesthesia [Recovered/Resolved]
  - Hypoaesthesia [Recovered/Resolved]
  - Acne [Recovered/Resolved]
  - Nausea [Recovered/Resolved]
  - Blood pressure systolic increased [Recovered/Resolved]
  - Diarrhoea [Recovered/Resolved]
